FAERS Safety Report 25721986 (Version 1)
Quarter: 2025Q3

REPORT INFORMATION
  Report Type: Spontaneous
  Country: US (occurrence: None)
  Receive Date: 20250823
  Receipt Date: 20250823
  Transmission Date: 20251021
  Serious: Yes (Hospitalization)
  Sender: FDA-CTU
  Company Number: None

PATIENT
  Age: 68 Year
  Sex: Female
  Weight: 66.1 kg

DRUGS (2)
  1. NILOTINIB [Suspect]
     Active Substance: NILOTINIB
     Dates: start: 20230412, end: 20230811
  2. PEMBROLIZUMAB [Suspect]
     Active Substance: PEMBROLIZUMAB
     Dates: end: 20230523

REACTIONS (10)
  - Syncope [None]
  - Therapy interrupted [None]
  - Alanine aminotransferase increased [None]
  - Nephritis [None]
  - Balance disorder [None]
  - Head injury [None]
  - Encephalopathy [None]
  - Metabolic disorder [None]
  - Hypoxia [None]
  - Toxicity to various agents [None]

NARRATIVE: CASE EVENT DATE: 20230806
